FAERS Safety Report 10187747 (Version 1)
Quarter: 2014Q2

REPORT INFORMATION
  Report Type: Spontaneous
  Country: US (occurrence: None)
  Receive Date: 20140521
  Receipt Date: 20140521
  Transmission Date: 20141212
  Serious: Yes (Death)
  Sender: FDA-Public Use
  Company Number: None

PATIENT
  Age: 26 Year
  Sex: Male
  Weight: 165 kg

DRUGS (7)
  1. ALPRAZOLAM 0.5 MG PUREPAC [Suspect]
     Indication: ANXIETY
     Dosage: 1, BID, ORAL
     Route: 048
     Dates: start: 20140203, end: 20140401
  2. CITALOPRAM 40 MG [Suspect]
     Indication: ANXIETY
     Route: 048
  3. HYDROCODONE [Concomitant]
  4. ACETAMINOPHEN [Concomitant]
  5. THC [Concomitant]
  6. CAFFIENE [Concomitant]
  7. COTININE [Concomitant]

REACTIONS (4)
  - Exposure via ingestion [None]
  - Toxicity to various agents [None]
  - Pulmonary congestion [None]
  - Oedema [None]
